FAERS Safety Report 7692514-6 (Version None)
Quarter: 2011Q3

REPORT INFORMATION
  Report Type: 
  Country: None (occurrence: None)
  Receive Date: 20110819
  Receipt Date: 20110810
  Transmission Date: 20111222
  Serious: Yes (Other)
  Sender: FDA-Public Use
  Company Number: US-BRISTOL-MYERS SQUIBB COMPANY-15961154

PATIENT
  Age: 89 Year
  Sex: Female

DRUGS (1)
  1. COUMADIN [Suspect]

REACTIONS (4)
  - INTERNATIONAL NORMALISED RATIO ABNORMAL [None]
  - TRANSIENT ISCHAEMIC ATTACK [None]
  - HEARING IMPAIRED [None]
  - DYSPHONIA [None]
